FAERS Safety Report 14330193 (Version 1)
Quarter: 2017Q4

REPORT INFORMATION
  Report Type: Other
  Country: US (occurrence: US)
  Receive Date: 20171227
  Receipt Date: 20171227
  Transmission Date: 20180321
  Serious: Yes (Hospitalization)
  Sender: FDA-Public Use
  Company Number: US-WALMART-2037832

PATIENT
  Age: 58 Year
  Sex: Male
  Weight: 101.36 kg

DRUGS (2)
  1. NEXIUM [Concomitant]
     Active Substance: ESOMEPRAZOLE MAGNESIUM
  2. EQUATE MAGNESIUM CITRATE LOW SODIUM + DYE FREE CHERRY [Suspect]
     Active Substance: MAGNESIUM CITRATE
     Indication: CONSTIPATION
     Route: 048
     Dates: start: 20171119, end: 20171125

REACTIONS (3)
  - Presyncope [Recovered/Resolved]
  - Dizziness [Recovered/Resolved]
  - Nausea [Recovered/Resolved]
